FAERS Safety Report 10728298 (Version 1)
Quarter: 2015Q1

REPORT INFORMATION
  Report Type: Spontaneous
  Country: CN (occurrence: CN)
  Receive Date: 20150121
  Receipt Date: 20150121
  Transmission Date: 20150721
  Serious: Yes (Death, Other)
  Sender: FDA-Public Use
  Company Number: PHHY2015CN006493

PATIENT
  Age: 60 Year
  Sex: Male

DRUGS (4)
  1. GEMCITABINE [Suspect]
     Active Substance: GEMCITABINE\GEMCITABINE HYDROCHLORIDE
     Indication: MALIGNANT FIBROUS HISTIOCYTOMA
     Route: 065
     Dates: start: 20110216
  2. IFOSFAMIDE. [Suspect]
     Active Substance: IFOSFAMIDE
     Indication: MALIGNANT FIBROUS HISTIOCYTOMA
     Route: 065
  3. CARBOPLATIN. [Suspect]
     Active Substance: CARBOPLATIN
     Indication: MALIGNANT FIBROUS HISTIOCYTOMA
     Route: 038
     Dates: start: 20110216
  4. DOXORUBICIN [Suspect]
     Active Substance: DOXORUBICIN
     Indication: MALIGNANT FIBROUS HISTIOCYTOMA
     Route: 065

REACTIONS (5)
  - Nausea [Unknown]
  - Malignant neoplasm progression [Unknown]
  - Malignant fibrous histiocytoma [Unknown]
  - Haemoptysis [Fatal]
  - Haematotoxicity [Unknown]
